FAERS Safety Report 11675062 (Version 1)
Quarter: 2015Q4

REPORT INFORMATION
  Report Type: Spontaneous
  Country: US (occurrence: US)
  Receive Date: 20151027
  Receipt Date: 20151027
  Transmission Date: 20160304
  Serious: No
  Sender: FDA-Public Use
  Company Number: US-ELI_LILLY_AND_COMPANY-US201008006732

PATIENT
  Sex: Female

DRUGS (1)
  1. FORTEO [Suspect]
     Active Substance: TERIPARATIDE
     Indication: OSTEOPOROSIS
     Dosage: 20 UG, DAILY (1/D)
     Dates: start: 20100803, end: 20100813

REACTIONS (10)
  - Fatigue [Unknown]
  - Drug hypersensitivity [Unknown]
  - Generalised erythema [Unknown]
  - Swelling [Unknown]
  - Pruritus generalised [Unknown]
  - Injection site swelling [Unknown]
  - Vomiting [Unknown]
  - Diarrhoea [Unknown]
  - Injection site pruritus [Unknown]
  - Injection site erythema [Unknown]
